FAERS Safety Report 8161205-X (Version None)
Quarter: 2012Q1

REPORT INFORMATION
  Report Type: 
  Country: None (occurrence: None)
  Receive Date: 20120103
  Receipt Date: 20110914
  Transmission Date: 20120608
  Serious: No
  Sender: FDA-Public Use
  Company Number: AE-2011-001550

PATIENT
  Age: 58 Year
  Sex: Male
  Weight: 88.4514 kg

DRUGS (8)
  1. GLIPIZIDE [Concomitant]
  2. ZANTAC [Concomitant]
  3. PEGASYS [Concomitant]
  4. INCIVEK [Suspect]
     Dosage: 2250 MG (750 MG, 3 IN 1 D), ORAL
     Route: 048
     Dates: start: 20110818
  5. COPEGUS [Concomitant]
  6. FISH OIL (FISH OIL) [Concomitant]
  7. LISINOPRIL [Concomitant]
  8. MULTIVITAMIN [Concomitant]

REACTIONS (5)
  - HAEMORRHOIDS [None]
  - ASTHENIA [None]
  - ANAL PRURITUS [None]
  - INSOMNIA [None]
  - FATIGUE [None]
